FAERS Safety Report 19461106 (Version 1)
Quarter: 2021Q2

REPORT INFORMATION
  Report Type: Spontaneous
  Country: US (occurrence: US)
  Receive Date: 20210625
  Receipt Date: 20210625
  Transmission Date: 20210717
  Serious: Yes (Death, Other)
  Sender: FDA-Public Use
  Company Number: US-SUN PHARMACEUTICAL INDUSTRIES LTD-2021R1-301276

PATIENT
  Age: 40 Year
  Sex: Female

DRUGS (7)
  1. NITROPRUSSIDE [Suspect]
     Active Substance: NITROPRUSSIDE
     Indication: THROMBOSIS
     Dosage: UNK
     Route: 022
  2. EPTIFIBATIDE. [Suspect]
     Active Substance: EPTIFIBATIDE
     Indication: THROMBOSIS
     Dosage: UNK
     Route: 022
  3. HEPARIN [Suspect]
     Active Substance: HEPARIN SODIUM
     Indication: ANTIPLATELET THERAPY
     Dosage: 4000 UNIT
     Route: 042
  4. ALTEPLASE. [Suspect]
     Active Substance: ALTEPLASE
     Indication: THROMBOSIS
     Dosage: 5 MILLIGRAM
     Route: 065
  5. NORADRENALINE [Suspect]
     Active Substance: NOREPINEPHRINE
     Indication: THROMBOSIS
     Dosage: UNK
     Route: 022
  6. ADRENALINE [Suspect]
     Active Substance: EPINEPHRINE
     Indication: THROMBOSIS
     Dosage: UNK
     Route: 022
  7. BIVALIRUDIN. [Suspect]
     Active Substance: BIVALIRUDIN
     Indication: PRODUCT USED FOR UNKNOWN INDICATION
     Dosage: UNK
     Route: 042

REACTIONS (2)
  - Drug ineffective [Fatal]
  - Cardiogenic shock [Fatal]
